FAERS Safety Report 4548317-4 (Version None)
Quarter: 2005Q1

REPORT INFORMATION
  Report Type: 
  Country: None (occurrence: None)
  Receive Date: 20050106
  Receipt Date: 20050106
  Transmission Date: 20050727
  Serious: Yes (Life-Threatening)
  Sender: FDA-Public Use
  Company Number: None

PATIENT
  Age: 37 Year
  Sex: Female
  Weight: 102.0593 kg

DRUGS (4)
  1. LUPRON DEPOT [Suspect]
     Indication: UTERINE LEIOMYOMA
     Dosage: ONCE MONTH INTRAVENOUS
     Route: 042
     Dates: start: 20040119, end: 20040419
  2. ANTIBIOTICS [Concomitant]
  3. ANESTHESIA [Concomitant]
  4. PAIN RELIEVERS [Concomitant]

REACTIONS (3)
  - ANTINUCLEAR ANTIBODY POSITIVE [None]
  - LIVER FUNCTION TEST ABNORMAL [None]
  - RASH [None]
